FAERS Safety Report 5872459-4 (Version None)
Quarter: 2008Q3

REPORT INFORMATION
  Report Type: 
  Country: None (occurrence: None)
  Receive Date: 20080905
  Receipt Date: 20080828
  Transmission Date: 20090109
  Serious: Yes (Other)
  Sender: FDA-Public Use
  Company Number: PHHY2008BR19521

PATIENT
  Age: 83 Year
  Sex: Male
  Weight: 77 kg

DRUGS (4)
  1. AREDIA [Suspect]
     Indication: OSTEITIS DEFORMANS
     Dosage: UNK
     Dates: start: 20020101
  2. AREDIA [Suspect]
     Dosage: UNK
     Dates: start: 20050101
  3. ZESTRIL [Concomitant]
     Indication: HYPERTENSION
     Dosage: UNK
     Route: 048
  4. ANCORON [Concomitant]
     Indication: HYPERTENSION
     Dosage: 1 TABLET/DAY
     Route: 048

REACTIONS (4)
  - BODY HEIGHT DECREASED [None]
  - RENAL CANCER [None]
  - RENAL SURGERY [None]
  - WEIGHT DECREASED [None]
